FAERS Safety Report 14692381 (Version 1)
Quarter: 2018Q1

REPORT INFORMATION
  Report Type: Spontaneous
  Country: US (occurrence: US)
  Receive Date: 20180329
  Receipt Date: 20180329
  Transmission Date: 20180509
  Serious: No
  Sender: FDA-Public Use
  Company Number: US-ASTRAZENECA-2018SE28118

PATIENT
  Sex: Female

DRUGS (3)
  1. IBRANCE [Suspect]
     Active Substance: PALBOCICLIB
     Indication: METASTASIS
     Route: 048
     Dates: start: 20171127
  2. ANASTROZOLE. [Suspect]
     Active Substance: ANASTROZOLE
     Route: 048
  3. IBRANCE [Suspect]
     Active Substance: PALBOCICLIB
     Indication: BREAST CANCER FEMALE
     Route: 048
     Dates: start: 20171127

REACTIONS (8)
  - Leukopenia [Unknown]
  - Pain [Recovering/Resolving]
  - Neuropathy peripheral [Unknown]
  - Paraesthesia [Unknown]
  - Peripheral swelling [Unknown]
  - Weight fluctuation [Unknown]
  - Stress fracture [Unknown]
  - Renal impairment [Unknown]
